FAERS Safety Report 10094324 (Version 1)
Quarter: 2014Q2

REPORT INFORMATION
  Report Type: Spontaneous
  Country: US (occurrence: US)
  Receive Date: 20140422
  Receipt Date: 20140422
  Transmission Date: 20141212
  Serious: Yes (Hospitalization)
  Sender: FDA-Public Use
  Company Number: US-BRISTOL-MYERS SQUIBB COMPANY-18749515

PATIENT
  Age: 56 Year
  Sex: Female
  Weight: 68.03 kg

DRUGS (9)
  1. HYDREA [Suspect]
     Dosage: TABS
     Dates: start: 201105
  2. CYMBALTA [Concomitant]
  3. NEURONTIN [Concomitant]
  4. ELAVIL [Concomitant]
     Dosage: AT NIGHT
  5. TRAZODONE HCL [Concomitant]
     Dosage: AT NIGHT
  6. XANAX [Concomitant]
  7. PERCOCET [Concomitant]
     Dosage: PERCOCET 10/325
  8. ASPIRIN [Concomitant]
  9. RITUXAN [Concomitant]
     Dosage: 1 DF: 2 INFUSIONS 2 WEEKS APART
     Route: 042

REACTIONS (2)
  - Pancytopenia [Unknown]
  - Nausea [Unknown]
